FAERS Safety Report 25884142 (Version 1)
Quarter: 2025Q4

REPORT INFORMATION
  Report Type: Spontaneous
  Country: EU (occurrence: EU)
  Receive Date: 20251006
  Receipt Date: 20251006
  Transmission Date: 20260117
  Serious: Yes (Hospitalization)
  Sender: AUROBINDO
  Company Number: EU-AEMPS-1755827

PATIENT
  Age: 90 Year
  Sex: Female

DRUGS (3)
  1. BISOPROLOL [Suspect]
     Active Substance: BISOPROLOL
     Indication: Atrial fibrillation
     Dosage: 7.5 MILLIGRAM, ONCE A DAY (5MG-0-2,5MG )
     Route: 048
     Dates: start: 20241119
  2. EDOXABAN TOSYLATE [Concomitant]
     Active Substance: EDOXABAN TOSYLATE
     Indication: Atrial fibrillation
     Dosage: 30 MILLIGRAM, ONCE A DAY (30MG/24H -)
     Route: 048
     Dates: start: 20240116
  3. Aremis [Concomitant]
     Indication: Depression
     Dosage: 50 MILLIGRAM, ONCE A DAY (50MG/24H)
     Route: 048
     Dates: start: 20050218

REACTIONS (3)
  - Presyncope [Unknown]
  - Hypotension [Unknown]
  - Bradycardia [Unknown]

NARRATIVE: CASE EVENT DATE: 20250916
